FAERS Safety Report 8532165 (Version 7)
Quarter: 2013Q3

REPORT INFORMATION
  Report Type: Report from Study
  Country: FR (occurrence: FR)
  Receive Date: 20120426
  Receipt Date: 20130908
  Transmission Date: 20140515
  Serious: Yes (Hospitalization, Other)
  Sender: FDA-Public Use
  Company Number: PHHY2012FR027967

PATIENT
  Age: 63 Year
  Sex: Male

DRUGS (10)
  1. STI571 [Suspect]
     Indication: CHRONIC MYELOID LEUKAEMIA
     Dosage: 400 MG, DAILY
     Route: 048
     Dates: start: 20070503, end: 20120312
  2. LOW-SODIUM DIET [Suspect]
  3. LEVOTHYROX [Concomitant]
     Dosage: 162.5 MG, UNK
  4. DIFFU K [Concomitant]
     Dosage: 2 DF, DAILY
  5. PREVISCAN [Concomitant]
     Dosage: 0.75 DF, DAILY
  6. AMLOR [Concomitant]
     Dosage: 5 MG, UNK
  7. CORDARONE [Concomitant]
     Dosage: 200 MG, UNK
  8. ALLOPURINOL [Concomitant]
     Dosage: 100 MG, UNK
  9. TAHOR [Concomitant]
  10. LASILIX [Concomitant]
     Dosage: 40 MG, UNK

REACTIONS (29)
  - Cardiac disorder [Recovering/Resolving]
  - Lung disorder [Recovering/Resolving]
  - Electric shock [Recovering/Resolving]
  - Respiratory failure [Recovering/Resolving]
  - Renal failure acute [Recovering/Resolving]
  - Fluid retention [Recovering/Resolving]
  - Blood sodium increased [Recovering/Resolving]
  - Dyspnoea [Recovering/Resolving]
  - Oedema peripheral [Recovering/Resolving]
  - Cardiac failure congestive [Unknown]
  - Atrial fibrillation [Recovered/Resolved]
  - Tachyarrhythmia [Recovered/Resolved]
  - Normochromic normocytic anaemia [Unknown]
  - Dyslipidaemia [Unknown]
  - Hypertriglyceridaemia [Unknown]
  - Hypercholesterolaemia [Unknown]
  - Hyperuricaemia [Unknown]
  - Pulmonary oedema [Unknown]
  - Pleural effusion [Unknown]
  - Dyspnoea exertional [Unknown]
  - Rales [Recovering/Resolving]
  - Hernia [Unknown]
  - Hypocalcaemia [Unknown]
  - Overweight [Unknown]
  - Blood creatinine increased [Recovered/Resolved]
  - Asthenia [Unknown]
  - Bone pain [Unknown]
  - Arthralgia [Unknown]
  - Restrictive pulmonary disease [Unknown]
